FAERS Safety Report 15970283 (Version 1)
Quarter: 2019Q1

REPORT INFORMATION
  Report Type: Report from Study
  Country: US (occurrence: US)
  Receive Date: 20190215
  Receipt Date: 20190215
  Transmission Date: 20190418
  Serious: Yes (Hospitalization, Other)
  Sender: FDA-Public Use
  Company Number: US-AMAG PHARMACEUTICALS, INC.-AMAG201802106

PATIENT

DRUGS (9)
  1. HUMALOG [Concomitant]
     Active Substance: INSULIN LISPRO
     Indication: TYPE 2 DIABETES MELLITUS
     Dosage: 20 UNITS, QD
     Route: 065
  2. PRENATAL VITAMINS [Concomitant]
     Active Substance: VITAMINS
     Indication: PREGNANCY
     Dosage: 1 UNITS, UNK
     Route: 065
  3. LEVOTHYROXINE. [Concomitant]
     Active Substance: LEVOTHYROXINE
     Indication: HYPOTHYROIDISM
     Dosage: 50 ?G, QD
     Route: 065
  4. ALDOMET [Concomitant]
     Active Substance: METHYLDOPA
     Indication: HYPERTENSION
     Dosage: UNK
     Route: 065
  5. FOLIC ACID. [Concomitant]
     Active Substance: FOLIC ACID
     Indication: PREGNANCY
     Dosage: 1 UNITS, QD
     Route: 065
  6. NPH INSULIN [Concomitant]
     Active Substance: INSULIN BEEF
     Indication: TYPE 2 DIABETES MELLITUS
     Dosage: 54 UNITS, QD
     Route: 065
  7. DHA [Concomitant]
     Active Substance: DIETARY SUPPLEMENT
     Indication: PREGNANCY
     Dosage: 1 UNITS, QD
     Route: 065
  8. MAKENA [Suspect]
     Active Substance: HYDROXYPROGESTERONE CAPROATE
     Indication: PREMATURE DELIVERY
     Dosage: 250 MG/ML, WEEKLY
     Route: 030
     Dates: start: 20180126, end: 20180420
  9. BABY ASPIRIN [Concomitant]
     Active Substance: ASPIRIN
     Indication: METHYLENETETRAHYDROFOLATE REDUCTASE GENE MUTATION
     Dosage: 81 MG, QD
     Route: 065
     Dates: end: 20180420

REACTIONS (3)
  - Hypertension [Not Recovered/Not Resolved]
  - Premature delivery [Recovered/Resolved]
  - Pre-eclampsia [Unknown]

NARRATIVE: CASE EVENT DATE: 20180422
